FAERS Safety Report 6225092-9 (Version None)
Quarter: 2009Q2

REPORT INFORMATION
  Report Type: 
  Country: None (occurrence: None)
  Receive Date: 20090612
  Receipt Date: 20090408
  Transmission Date: 20091009
  Serious: No
  Sender: FDA-Public Use
  Company Number: US-ABBOTT-09P-163-0567158-00

PATIENT
  Sex: Female
  Weight: 89.892 kg

DRUGS (10)
  1. HUMIRA [Suspect]
     Indication: ANKYLOSING SPONDYLITIS
     Route: 058
     Dates: start: 20080101
  2. METOPROLOL SUCCINATE [Concomitant]
     Indication: HYPERTENSION
  3. ALTACE [Concomitant]
     Indication: HYPERTENSION
  4. FELODOPINE ER [Concomitant]
     Indication: HYPERTENSION
  5. LEVOXYL [Concomitant]
     Indication: HYPOTHYROIDISM
  6. NEXIUM [Concomitant]
     Indication: EROSIVE OESOPHAGITIS
  7. CRESTOR [Concomitant]
     Indication: BLOOD CHOLESTEROL INCREASED
  8. PERCOCET [Concomitant]
     Indication: PAIN
  9. MS CONTIN [Concomitant]
     Indication: PAIN
  10. SOMA [Concomitant]
     Indication: MUSCLE RELAXANT THERAPY

REACTIONS (2)
  - INJECTION SITE HAEMATOMA [None]
  - INJECTION SITE IRRITATION [None]
